FAERS Safety Report 11620819 (Version 1)
Quarter: 2015Q4

REPORT INFORMATION
  Report Type: Spontaneous
  Country: JP (occurrence: JP)
  Receive Date: 20151012
  Receipt Date: 20151012
  Transmission Date: 20160304
  Serious: Yes (Hospitalization)
  Sender: FDA-Public Use
  Company Number: JP-BAYER-2015-435332

PATIENT
  Age: 73 Year
  Sex: Female

DRUGS (1)
  1. BAYASPIRIN [Suspect]
     Active Substance: ASPIRIN
     Dosage: UNK
     Route: 048

REACTIONS (6)
  - Gastrointestinal necrosis [None]
  - Intestinal ulcer [None]
  - Rectal adenocarcinoma [None]
  - Anaemia [None]
  - Mesenteritis [None]
  - Mesenteric vascular insufficiency [None]
